FAERS Safety Report 5404563-9 (Version None)
Quarter: 2007Q3

REPORT INFORMATION
  Report Type: 
  Country: None (occurrence: None)
  Receive Date: 20070802
  Receipt Date: 20070720
  Transmission Date: 20080115
  Serious: Yes (Other)
  Sender: FDA-Public Use
  Company Number: US-ELI_LILLY_AND_COMPANY-US200705006444

PATIENT
  Age: 41 Year
  Sex: Female

DRUGS (12)
  1. CYMBALTA [Suspect]
     Indication: FIBROMYALGIA
     Dosage: 120 MG, DAILY (1/D)
     Dates: start: 20051005, end: 20070424
  2. CYMBALTA [Suspect]
     Dosage: 60 MG, UNK
     Dates: start: 20070101
  3. CLONAZEPAM [Concomitant]
     Indication: ANXIETY
  4. LIDODERM [Concomitant]
     Indication: PAIN
     Dosage: 5 %, UNK
  5. HYDROMORPHONE HCL [Concomitant]
     Indication: SPINAL FUSION SURGERY
     Dosage: 2 MG, EACH EVENING
  6. TYLENOL                                 /SCH/ [Concomitant]
  7. COLACE [Concomitant]
  8. SINGULAIR [Concomitant]
  9. NEXIUM [Concomitant]
  10. ALUPENT [Concomitant]
  11. ALBUTEROL [Concomitant]
  12. LORAZEPAM [Concomitant]
     Indication: ANXIETY
     Dosage: UNK, AS NEEDED

REACTIONS (2)
  - HAEMOCHROMATOSIS [None]
  - HEPATIC STEATOSIS [None]
